FAERS Safety Report 4999273-6 (Version None)
Quarter: 2006Q2

REPORT INFORMATION
  Report Type: 
  Country: None (occurrence: None)
  Receive Date: 20060511
  Receipt Date: 20060424
  Transmission Date: 20061013
  Serious: Yes (Other)
  Sender: FDA-Public Use
  Company Number: PHEH2006US05357

PATIENT
  Age: 85 Year
  Sex: Female

DRUGS (8)
  1. MIACALCIN [Suspect]
     Indication: OSTEOPOROSIS
     Dosage: 200 IU, QD
     Dates: start: 20050301
  2. MICARDIS [Concomitant]
     Dosage: 40 MG, QD
  3. ZOCOR [Concomitant]
     Dosage: 10 MG, QD
  4. ZYRTEC [Concomitant]
     Dosage: 10 MG, QD
  5. AMILORIDE HCL AND HYDROCHLOROTHIAZIDE [Concomitant]
  6. CENTRUM SILVER [Concomitant]
  7. CALTRATE 600 + VITAMIN D [Concomitant]
  8. ULTRACET [Concomitant]

REACTIONS (4)
  - GASTROINTESTINAL DISORDER [None]
  - JAW DISORDER [None]
  - OSTEONECROSIS [None]
  - PAIN IN JAW [None]
